FAERS Safety Report 8113381-2 (Version None)
Quarter: 2012Q1

REPORT INFORMATION
  Report Type: 
  Country: None (occurrence: None)
  Receive Date: 20120203
  Receipt Date: 20120130
  Transmission Date: 20120608
  Serious: Yes (Death, Other)
  Sender: FDA-Public Use
  Company Number: DE-ELI_LILLY_AND_COMPANY-DE201202000328

PATIENT
  Age: 76 Year
  Sex: Female

DRUGS (4)
  1. SORAFENIB [Concomitant]
     Indication: NON-SMALL CELL LUNG CANCER STAGE IV
     Dosage: 400 MG, BID ON DAYS 5 - 21 OF THE 1ST CYCLE
     Route: 048
  2. CISPLATIN [Concomitant]
     Indication: NON-SMALL CELL LUNG CANCER STAGE IV
     Dosage: 75 MG/M2, ON DAY 1 OF EACH 21 DAY CYCLE
  3. SORAFENIB [Concomitant]
     Dosage: 400 MG, BID ON EACH DAY OF THE 21 DAY CYCLE
     Route: 048
  4. GEMCITABINE HYDROCHLORIDE [Suspect]
     Indication: NON-SMALL CELL LUNG CANCER STAGE IV
     Dosage: 1250 MG/M2, ON DAYS 1 AND 8 OF EACH 21 DAY CYCLE

REACTIONS (2)
  - SEPSIS [None]
  - FEBRILE NEUTROPENIA [None]
